FAERS Safety Report 8021616-X (Version None)
Quarter: 2012Q1

REPORT INFORMATION
  Report Type: 
  Country: None (occurrence: None)
  Receive Date: 20120104
  Receipt Date: 20120104
  Transmission Date: 20120608
  Serious: No
  Sender: FDA-Public Use
  Company Number: None

PATIENT
  Age: 53 Year
  Sex: Female
  Weight: 86.182 kg

DRUGS (1)
  1. RECLAST [Suspect]
     Indication: BONE DISORDER

REACTIONS (8)
  - PYREXIA [None]
  - UNEVALUABLE EVENT [None]
  - FATIGUE [None]
  - HYPERHIDROSIS [None]
  - PAIN [None]
  - BACK PAIN [None]
  - MUSCULOSKELETAL PAIN [None]
  - CHILLS [None]
